FAERS Safety Report 5528692-4 (Version None)
Quarter: 2007Q4

REPORT INFORMATION
  Report Type: 
  Country: None (occurrence: None)
  Receive Date: 20071113
  Receipt Date: 20071004
  Transmission Date: 20080405
  Serious: Yes (Hospitalization)
  Sender: FDA-Public Use
  Company Number: 2007-165326-NL

PATIENT
  Age: 33 Year
  Sex: Female
  Weight: 61.1 kg

DRUGS (1)
  1. IMPLANON [Suspect]
     Indication: CONTRACEPTION
     Dosage: SUBDERMAL
     Route: 059
     Dates: start: 20070627, end: 20071004

REACTIONS (2)
  - HEMIPARESIS [None]
  - MIGRAINE [None]
